FAERS Safety Report 16145861 (Version 1)
Quarter: 2019Q1

REPORT INFORMATION
  Report Type: Spontaneous
  Country: US (occurrence: US)
  Receive Date: 20190227
  Receipt Date: 20190227
  Transmission Date: 20190418
  Serious: Yes (Hospitalization, Other)
  Sender: FDA-Public Use
  Company Number: None

PATIENT
  Age: 72 Year
  Sex: Female
  Weight: 68.04 kg

DRUGS (1)
  1. MEGACE (MEGASTRO) [Suspect]
     Active Substance: MEGESTROL ACETATE
     Indication: GASTRIC INFECTION
     Dosage: ?          QUANTITY:1 PILL;?
     Route: 048
     Dates: start: 2014

REACTIONS (2)
  - Neuropathy peripheral [None]
  - Thrombosis [None]

NARRATIVE: CASE EVENT DATE: 201407
